FAERS Safety Report 7768365-0 (Version None)
Quarter: 2011Q3

REPORT INFORMATION
  Report Type: 
  Country: None (occurrence: None)
  Receive Date: 20110922
  Receipt Date: 20101015
  Transmission Date: 20111222
  Serious: Yes (Other)
  Sender: FDA-Public Use
  Company Number: US-ASTRAZENECA-2008UW05121

PATIENT
  Age: 44 Year
  Sex: Male
  Weight: 127.9 kg

DRUGS (8)
  1. SEROQUEL [Suspect]
     Indication: SCHIZOPHRENIA, PARANOID TYPE
     Dosage: 50-600 MG/DAY
     Route: 048
     Dates: start: 20010101
  2. ZYPREXA [Concomitant]
     Indication: SCHIZOPHRENIA, PARANOID TYPE
     Dates: start: 20020101
  3. STELAZINE [Concomitant]
  4. SEROQUEL [Suspect]
     Indication: SLEEP DISORDER
     Dosage: 50-600 MG/DAY
     Route: 048
     Dates: start: 20010101
  5. ABILIFY [Concomitant]
  6. GEODON [Concomitant]
  7. HALDOL [Concomitant]
  8. RISPERDAL [Concomitant]
     Indication: SCHIZOPHRENIA, PARANOID TYPE
     Dates: start: 19990101, end: 20020101

REACTIONS (9)
  - DIABETES MELLITUS [None]
  - WEIGHT INCREASED [None]
  - HYPERLIPIDAEMIA [None]
  - BACK PAIN [None]
  - BLOOD CHOLESTEROL INCREASED [None]
  - EXTRAPYRAMIDAL DISORDER [None]
  - TYPE 2 DIABETES MELLITUS [None]
  - OBESITY [None]
  - BLOOD TRIGLYCERIDES INCREASED [None]
